FAERS Safety Report 8539071-X (Version None)
Quarter: 2012Q3

REPORT INFORMATION
  Report Type: 
  Country: None (occurrence: None)
  Receive Date: 20120726
  Receipt Date: 20120724
  Transmission Date: 20120928
  Serious: Yes (Death, Hospitalization)
  Sender: FDA-Public Use
  Company Number: PHHY2012BR055232

PATIENT
  Sex: Male

DRUGS (6)
  1. ESCITALOPRAM [Concomitant]
     Indication: DEPRESSION
     Dosage: 1 DF, DAILY
     Route: 048
  2. AVODART [Concomitant]
     Indication: PROSTATIC DISORDER
     Dosage: 1 DF, DAILY
     Route: 048
  3. DIOVAN [Suspect]
     Indication: BLOOD PRESSURE
     Dosage: 80 MG, DAILY
     Route: 048
  4. FORMOTEROL FUMARATE [Suspect]
     Indication: CHRONIC OBSTRUCTIVE PULMONARY DISEASE
     Dosage: 2 DF, DAILY
  5. AMIODARONE HYDROCHLORIDE [Concomitant]
     Indication: CARDIAC DISORDER
     Dosage: 100 MG, THREE TIMES WEEKLY
     Route: 048
  6. HYDROCHLOROTHIAZIDE [Concomitant]
     Indication: CARDIAC DISORDER
     Dosage: 1 DF, DAILY
     Route: 048

REACTIONS (2)
  - PNEUMONIA [None]
  - DEATH [None]
